FAERS Safety Report 6793587-5 (Version None)
Quarter: 2010Q2

REPORT INFORMATION
  Report Type: 
  Country: None (occurrence: None)
  Receive Date: 20100624
  Receipt Date: 20090120
  Transmission Date: 20101027
  Serious: No
  Sender: FDA-Public Use
  Company Number: US-PFIZER INC-2008152811

PATIENT
  Sex: Female

DRUGS (2)
  1. XALATAN [Suspect]
     Dosage: UNK
     Dates: start: 20030101
  2. DRUG, UNSPECIFIED [Concomitant]
     Dosage: UNK

REACTIONS (1)
  - COELIAC DISEASE [None]
